FAERS Safety Report 11739653 (Version 1)
Quarter: 2015Q4

REPORT INFORMATION
  Report Type: Report from Study
  Country: US (occurrence: US)
  Receive Date: 20151113
  Receipt Date: 20151113
  Transmission Date: 20160304
  Serious: Yes (Life-Threatening)
  Sender: FDA-Public Use
  Company Number: PHEH2015US023479

PATIENT
  Age: 87 Year
  Sex: Female

DRUGS (1)
  1. TYKERB [Suspect]
     Active Substance: LAPATINIB DITOSYLATE
     Indication: PRODUCT USED FOR UNKNOWN INDICATION
     Dosage: 250 MG, BID
     Route: 051
     Dates: start: 20150831

REACTIONS (3)
  - Malaise [Unknown]
  - Terminal state [Unknown]
  - Fatigue [Unknown]

NARRATIVE: CASE EVENT DATE: 20150831
